FAERS Safety Report 5546121-1 (Version None)
Quarter: 2007Q4

REPORT INFORMATION
  Report Type: 
  Country: None (occurrence: None)
  Receive Date: 20071211
  Receipt Date: 20071108
  Transmission Date: 20080405
  Serious: No
  Sender: FDA-Public Use
  Company Number: US-BRISTOL-MYERS SQUIBB COMPANY-13976246

PATIENT
  Sex: Male

DRUGS (1)
  1. EMSAM [Suspect]
     Dosage: DOSE INCREASED TO EMSAM 9 MG/24HR,MEDICATION STOPPED.
     Route: 062
     Dates: start: 20071001

REACTIONS (1)
  - DRUG INEFFECTIVE [None]
